FAERS Safety Report 4530554-6 (Version None)
Quarter: 2004Q4

REPORT INFORMATION
  Report Type: 
  Country: None (occurrence: None)
  Receive Date: 20041216
  Receipt Date: 20041216
  Transmission Date: 20050328
  Serious: Yes (Death, Hospitalization)
  Sender: FDA-Public Use
  Company Number: None

PATIENT
  Age: 68 Year
  Sex: Male
  Weight: 101.8 kg

DRUGS (2)
  1. AMIODARONE 200MG TABLETS [Suspect]
     Indication: ATRIAL FIBRILLATION
     Dosage: 200 MG TABLETS DAILY
     Dates: start: 20031226, end: 20040919
  2. WARFARIN [Concomitant]

REACTIONS (1)
  - ACUTE RESPIRATORY DISTRESS SYNDROME [None]
